FAERS Safety Report 8571442-8 (Version None)
Quarter: 2012Q3

REPORT INFORMATION
  Report Type: 
  Country: None (occurrence: None)
  Receive Date: 20120806
  Receipt Date: 20120726
  Transmission Date: 20120928
  Serious: Yes (Hospitalization, Other)
  Sender: FDA-Public Use
  Company Number: IT-JNJFOC-20120113595

PATIENT
  Age: 16 Year
  Sex: Male

DRUGS (4)
  1. ANTIHISTAMINE [Concomitant]
     Indication: PREMEDICATION
     Route: 042
     Dates: start: 20110117, end: 20110117
  2. REMICADE [Suspect]
     Indication: CROHN'S DISEASE
     Route: 042
     Dates: start: 20100417, end: 20110117
  3. HUMIRA [Suspect]
     Indication: CROHN'S DISEASE
     Route: 058
     Dates: start: 20110124, end: 20110805
  4. STEROIDS NOS [Concomitant]
     Indication: PREMEDICATION
     Route: 042
     Dates: start: 20110117, end: 20110117

REACTIONS (13)
  - INFUSION RELATED REACTION [None]
  - VOMITING [None]
  - CROHN'S DISEASE [None]
  - ASTHENIA [None]
  - DYSPNOEA [None]
  - WHITE BLOOD CELL COUNT ABNORMAL [None]
  - BRONCHOPNEUMONIA [None]
  - OXYGEN SATURATION DECREASED [None]
  - POLYARTHRITIS [None]
  - CHEST DISCOMFORT [None]
  - ERYTHEMA [None]
  - INTESTINAL STENOSIS [None]
  - MEDULLOBLASTOMA [None]
